FAERS Safety Report 4604583-8 (Version None)
Quarter: 2005Q1

REPORT INFORMATION
  Report Type: 
  Country: None (occurrence: None)
  Receive Date: 20050217
  Receipt Date: 20041227
  Transmission Date: 20050727
  Serious: No
  Sender: FDA-Public Use
  Company Number: S04-USA-08056-01

PATIENT
  Age: 90 Year
  Sex: Female

DRUGS (14)
  1. NAMENDA [Suspect]
     Indication: DEMENTIA ALZHEIMER'S TYPE
     Dosage: 10 MG BID PO
     Route: 048
     Dates: start: 20040505, end: 20041123
  2. NAMENDA [Suspect]
     Indication: DEMENTIA ALZHEIMER'S TYPE
     Dosage: 5 MG QD PO
     Route: 048
     Dates: start: 20040414, end: 20040420
  3. NAMENDA [Suspect]
     Indication: DEMENTIA ALZHEIMER'S TYPE
     Dosage: 5 MG BID PO
     Route: 048
     Dates: start: 20040421, end: 20040427
  4. NAMENDA [Suspect]
     Indication: DEMENTIA ALZHEIMER'S TYPE
     Dosage: 15 MG QD PO
     Route: 048
     Dates: start: 20040428, end: 20040504
  5. FOSAMAX [Concomitant]
  6. SYNTHROID [Concomitant]
  7. ZOCOR [Concomitant]
  8. TRIAMTERENE [Concomitant]
  9. ASPIRIN [Concomitant]
  10. POTASSIUM CHLORIDE [Concomitant]
  11. VITAMIN D [Concomitant]
  12. VITAMIN E [Concomitant]
  13. CALCIUM GLUCONATE [Concomitant]
  14. MULTI-VITAMIN [Concomitant]

REACTIONS (3)
  - HEADACHE [None]
  - PAIN [None]
  - PARAESTHESIA [None]
